FAERS Safety Report 22080257 (Version 2)
Quarter: 2023Q1

REPORT INFORMATION
  Report Type: Spontaneous
  Country: JP (occurrence: JP)
  Receive Date: 20230309
  Receipt Date: 20230315
  Transmission Date: 20230417
  Serious: Yes (Hospitalization, Other)
  Sender: FDA-Public Use
  Company Number: JP-ALLERGAN-2307628US

PATIENT
  Sex: Female

DRUGS (7)
  1. ASENAPINE MALEATE [Suspect]
     Active Substance: ASENAPINE MALEATE
     Indication: Product used for unknown indication
     Dosage: 20 MG
     Route: 060
  2. BREXPIPRAZOLE [Concomitant]
     Active Substance: BREXPIPRAZOLE
     Dosage: 2 MG
  3. OLANZAPINE [Concomitant]
     Active Substance: OLANZAPINE
     Dosage: 20 MG
  4. OLANZAPINE [Concomitant]
     Active Substance: OLANZAPINE
     Dosage: 15 MG
  5. BLONANSERIN [Concomitant]
     Active Substance: BLONANSERIN
     Dosage: 24 MG
  6. QUETIAPINE FUMARATE [Concomitant]
     Active Substance: QUETIAPINE FUMARATE
     Dosage: 400 MG
  7. RISPERIDONE [Concomitant]
     Active Substance: RISPERIDONE

REACTIONS (5)
  - Suicide attempt [Unknown]
  - Dysgeusia [Unknown]
  - Condition aggravated [Unknown]
  - Hallucination, auditory [Unknown]
  - Fracture [Unknown]
